FAERS Safety Report 4665543-4 (Version None)
Quarter: 2005Q2

REPORT INFORMATION
  Report Type: 
  Country: None (occurrence: None)
  Receive Date: 20050519
  Receipt Date: 20040319
  Transmission Date: 20051028
  Serious: Yes (Disabling)
  Sender: FDA-Public Use
  Company Number: 200410908EU

PATIENT
  Sex: Male

DRUGS (4)
  1. ARAVA [Suspect]
     Indication: RHEUMATOID ARTHRITIS
     Route: 048
     Dates: start: 20011201, end: 20031119
  2. ZOCOR [Concomitant]
  3. METOZOC [Concomitant]
  4. PREDNISOLONE [Concomitant]

REACTIONS (2)
  - MYASTHENIC SYNDROME [None]
  - MYOPATHY [None]
